FAERS Safety Report 18972642 (Version 12)
Quarter: 2021Q4

REPORT INFORMATION
  Report Type: Spontaneous
  Country: US (occurrence: US)
  Receive Date: 20210305
  Receipt Date: 20211115
  Transmission Date: 20220303
  Serious: Yes (Other)
  Sender: FDA-Public Use
  Company Number: US-GLAXOSMITHKLINE-US2021AMR057087

PATIENT
  Sex: Female

DRUGS (5)
  1. ZEJULA [Suspect]
     Active Substance: NIRAPARIB
     Indication: Ovarian cancer
     Dosage: 200 MG, QD
     Dates: start: 20210215
  2. ZEJULA [Suspect]
     Active Substance: NIRAPARIB
     Dosage: 1 DF, QD(1 CAPSULE DAILY)
  3. ZEJULA [Suspect]
     Active Substance: NIRAPARIB
     Dosage: 100 MG, QD
     Route: 048
  4. ELIQUIS [Concomitant]
     Active Substance: APIXABAN
     Indication: Product used for unknown indication
     Dosage: UNK
  5. CYMBALTA [Concomitant]
     Active Substance: DULOXETINE HYDROCHLORIDE
     Indication: Product used for unknown indication
     Dosage: UNK

REACTIONS (16)
  - Renal impairment [Unknown]
  - Insomnia [Recovering/Resolving]
  - Nausea [Unknown]
  - Feeling abnormal [Unknown]
  - Dyspnoea [Unknown]
  - Palpitations [Unknown]
  - Heart rate increased [Not Recovered/Not Resolved]
  - Blood pressure increased [Not Recovered/Not Resolved]
  - Red blood cell count decreased [Not Recovered/Not Resolved]
  - Haemoglobin decreased [Unknown]
  - Fatigue [Unknown]
  - Malaise [Recovering/Resolving]
  - White blood cell count decreased [Unknown]
  - Intentional product misuse [Unknown]
  - Product dose omission issue [Unknown]
  - Product dose omission in error [Unknown]
